FAERS Safety Report 17781663 (Version 1)
Quarter: 2020Q2

REPORT INFORMATION
  Report Type: Spontaneous
  Country: US (occurrence: US)
  Receive Date: 20200513
  Receipt Date: 20200513
  Transmission Date: 20200714
  Serious: No
  Sender: FDA-Public Use
  Company Number: None

PATIENT
  Age: 70 Year
  Sex: Male

DRUGS (1)
  1. AMIKACIN INJ 500MG/2ML [Suspect]
     Active Substance: AMIKACIN
     Dosage: OTHER
     Route: 050
     Dates: start: 202004, end: 202004

REACTIONS (2)
  - Rash [None]
  - Headache [None]

NARRATIVE: CASE EVENT DATE: 20200422
